FAERS Safety Report 23463654 (Version 1)
Quarter: 2024Q1

REPORT INFORMATION
  Report Type: Spontaneous
  Country: FR (occurrence: FR)
  Receive Date: 20240131
  Receipt Date: 20240131
  Transmission Date: 20240410
  Serious: Yes (Other)
  Sender: FDA-Public Use
  Company Number: FR-HALEON-FRCH2024HLN005080

PATIENT

DRUGS (15)
  1. SCOPOLAMINE [Suspect]
     Active Substance: SCOPOLAMINE
     Indication: Salivary hypersecretion
     Dosage: 1 DF ( IN 3 DAYS)
     Route: 023
  2. BACLOFEN [Suspect]
     Active Substance: BACLOFEN
     Indication: Muscle twitching
     Dosage: 3 DF, QD
     Route: 048
  3. PRIMPERAN [Suspect]
     Active Substance: METOCLOPRAMIDE HYDROCHLORIDE
     Indication: Impaired gastric emptying
     Dosage: 10 MG, TID (IN 8 HOURS, (PRIMPERAN, 0.1% ADULTS, DRINKABLE SOLUTION SWEETENED WITH SODIUM CYCLAMATE
     Route: 048
     Dates: start: 20231122, end: 20231124
  4. VALIUM [Concomitant]
     Active Substance: DIAZEPAM
     Indication: Epilepsy
     Dosage: 6 GTT, QD
     Route: 048
  5. SODIUM CHLORIDE [Concomitant]
     Active Substance: SODIUM CHLORIDE
     Indication: Hyponatraemia
     Dosage: 1 DF, QD (SOLUTION FOR PERFUSION)
     Route: 042
  6. VOGALENE [Concomitant]
     Active Substance: METOPIMAZINE
     Indication: Vomiting
     Dosage: 2 DF, QD
     Route: 054
  7. DAFALGAN [Concomitant]
     Active Substance: ACETAMINOPHEN
     Indication: Pain
     Dosage: 8 DF, QD
     Route: 048
  8. DAFALGAN [Concomitant]
     Active Substance: ACETAMINOPHEN
     Indication: Pyrexia
     Dosage: UNK
  9. POTASSIUM GLUCONATE [Concomitant]
     Active Substance: POTASSIUM GLUCONATE
     Indication: Hypokalaemia
     Dosage: 30 ML (IN 3 DAYS)
     Route: 048
  10. TOPIRAMATE [Concomitant]
     Active Substance: TOPIRAMATE
     Indication: Epilepsy
     Dosage: 2 DF, QD
     Route: 048
  11. IPRATROPIUM [Concomitant]
     Active Substance: IPRATROPIUM
     Indication: Pneumonia aspiration
     Dosage: 2 DF, QD (IPRATROPIUM ARROW ADULTES 0.5 MG/2 ML, SOLUTION FOR INHALATION BY NEB)
  12. LOVENOX [Concomitant]
     Active Substance: ENOXAPARIN SODIUM
     Indication: Thrombosis prophylaxis
     Dosage: 1 DF, QD (LOVENOX 4000 IU ANTI-XA/0.4 ML, SOLUTION FOR INJECTION IN PRE-FILLED)
     Route: 058
  13. ALBUTEROL [Concomitant]
     Active Substance: ALBUTEROL
     Indication: Pneumonia aspiration
     Dosage: 4 DF, QD (SALBUTAMOL ARROW 5 MG/2,5 ML, SOLUTION FOR INHALATION BY NEBULIZER IN)
  14. LANSOPRAZOLE [Concomitant]
     Active Substance: LANSOPRAZOLE
     Indication: Gastrooesophageal reflux disease
     Dosage: 15 MG, QD
     Route: 048
  15. TOPIRAMATE [Concomitant]
     Active Substance: TOPIRAMATE
     Indication: Epilepsy
     Dosage: 2 DF, QD
     Route: 048

REACTIONS (1)
  - Bradycardia [Not Recovered/Not Resolved]

NARRATIVE: CASE EVENT DATE: 20231123
